FAERS Safety Report 9456569 (Version 1)
Quarter: 2013Q3

REPORT INFORMATION
  Report Type: Spontaneous
  Country: FR (occurrence: FR)
  Receive Date: 20130813
  Receipt Date: 20130813
  Transmission Date: 20140515
  Serious: Yes (Hospitalization)
  Sender: FDA-Public Use
  Company Number: FR-ASTRAZENECA-2013SE61168

PATIENT
  Age: 27196 Day
  Sex: Male

DRUGS (8)
  1. INEXIUM [Suspect]
     Route: 048
  2. GLUCOPHAGE [Suspect]
     Route: 048
  3. GLICAZIDE [Suspect]
     Route: 048
  4. TAHOR [Suspect]
     Route: 048
  5. PLAVIX [Suspect]
     Route: 048
  6. LOVENOX [Suspect]
     Route: 058
  7. NEXAVAR [Suspect]
     Indication: HEPATOCELLULAR CARCINOMA
     Route: 048
     Dates: start: 20130112
  8. FORTIMEL [Concomitant]

REACTIONS (15)
  - Aphasia [Recovered/Resolved]
  - Partial seizures [Recovered/Resolved]
  - Altered state of consciousness [Recovered/Resolved]
  - Clonus [Unknown]
  - Cognitive disorder [Unknown]
  - Transient ischaemic attack [Unknown]
  - Loss of consciousness [Unknown]
  - Confusional state [Unknown]
  - Somnolence [Unknown]
  - Ventricular extrasystoles [Unknown]
  - Electroencephalogram abnormal [Unknown]
  - Arteriosclerosis [Unknown]
  - CSF protein increased [Unknown]
  - CSF lactate increased [Unknown]
  - Action tremor [Unknown]
